FAERS Safety Report 9885049 (Version 1)
Quarter: 2014Q1

REPORT INFORMATION
  Report Type: Spontaneous
  Country: TR (occurrence: TR)
  Receive Date: 20140210
  Receipt Date: 20140210
  Transmission Date: 20141002
  Serious: Yes (Other)
  Sender: FDA-Public Use
  Company Number: TR-PFIZER INC-2014033238

PATIENT
  Age: 80 Year
  Sex: Female

DRUGS (1)
  1. SUNITINIB MALATE [Suspect]
     Indication: METASTATIC RENAL CELL CARCINOMA
     Dosage: 25 MG, DAILY, FOR 4 WEEKS EVERY 6 WEEKS
     Dates: start: 201003

REACTIONS (2)
  - Acute pulmonary oedema [Unknown]
  - Hypertension [Unknown]
